FAERS Safety Report 9236878 (Version 1)
Quarter: 2013Q2

REPORT INFORMATION
  Report Type: Spontaneous
  Country: GB (occurrence: None)
  Receive Date: 20130415
  Receipt Date: 20130415
  Transmission Date: 20140414
  Serious: Yes (Hospitalization)
  Sender: FDA-Public Use
  Company Number: IMP_06661_2013

PATIENT
  Age: 66 Year
  Sex: Female

DRUGS (1)
  1. METFORMIN (METFORMIN) [Suspect]
     Indication: TYPE 2 DIABETES MELLITUS
     Dosage: (1 G BID), (DF)

REACTIONS (18)
  - Lactic acidosis [None]
  - Diarrhoea [None]
  - Vomiting [None]
  - Abdominal pain [None]
  - Oliguria [None]
  - Hyperkalaemia [None]
  - Pulseless electrical activity [None]
  - Cardiac arrest [None]
  - Continuous haemodiafiltration [None]
  - Intestinal ischaemia [None]
  - Haemodynamic instability [None]
  - Hypotension [None]
  - Dehydration [None]
  - Peritonitis [None]
  - Renal failure acute [None]
  - Hypoglycaemia [None]
  - Dysplasia [None]
  - Adenocarcinoma [None]
